FAERS Safety Report 5824018-7 (Version None)
Quarter: 2008Q3

REPORT INFORMATION
  Report Type: 
  Country: None (occurrence: None)
  Receive Date: 20080728
  Receipt Date: 20080723
  Transmission Date: 20090109
  Serious: Yes (Other)
  Sender: FDA-Public Use
  Company Number: US-RANBAXY-2008US-16614

PATIENT

DRUGS (1)
  1. CIPROFLOXACIN [Suspect]
     Indication: STOMACH DISCOMFORT
     Dosage: UNK
     Dates: start: 20080201, end: 20080201

REACTIONS (3)
  - PAIN IN EXTREMITY [None]
  - ROTATOR CUFF SYNDROME [None]
  - TENDON RUPTURE [None]
